FAERS Safety Report 18409720 (Version 1)
Quarter: 2020Q4

REPORT INFORMATION
  Report Type: Report from Study
  Country: CA (occurrence: CA)
  Receive Date: 20201021
  Receipt Date: 20201021
  Transmission Date: 20210114
  Serious: Yes (Hospitalization)
  Sender: FDA-Public Use
  Company Number: CA-ASTRAZENECA-2020SE03847

PATIENT
  Age: 67 Year
  Sex: Male

DRUGS (4)
  1. UMECLIDINIUM BROMIDE [Suspect]
     Active Substance: UMECLIDINIUM BROMIDE
     Indication: ASTHMA
     Route: 065
  2. NUCALA [Concomitant]
     Active Substance: MEPOLIZUMAB
     Indication: ASTHMA
     Dosage: 100.0MG UNKNOWN
  3. VENTOLIN [Suspect]
     Active Substance: ALBUTEROL SULFATE
     Indication: ASTHMA
     Route: 065
  4. SYMBICORT [Suspect]
     Active Substance: BUDESONIDE\FORMOTEROL FUMARATE DIHYDRATE
     Indication: PRODUCT USED FOR UNKNOWN INDICATION
     Route: 055

REACTIONS (8)
  - Asthma [Unknown]
  - Condition aggravated [Unknown]
  - Eosinophil count increased [Unknown]
  - Obstructive airways disorder [Unknown]
  - Dyspnoea exertional [Unknown]
  - Lung disorder [Unknown]
  - Drug ineffective [Unknown]
  - Asthma-chronic obstructive pulmonary disease overlap syndrome [Unknown]
